FAERS Safety Report 16502389 (Version 1)
Quarter: 2019Q3

REPORT INFORMATION
  Report Type: Spontaneous
  Country: BR (occurrence: BR)
  Receive Date: 20190701
  Receipt Date: 20190701
  Transmission Date: 20191004
  Serious: Yes (Other)
  Sender: FDA-Public Use
  Company Number: BR-AMREGENT-20191337

PATIENT
  Age: 37 Year
  Sex: Female
  Weight: 72 kg

DRUGS (4)
  1. ARISTAB [Concomitant]
     Active Substance: ARIPIPRAZOLE
     Dosage: 10 MG , 1 IN 1D
     Route: 048
  2. RISPERIDONE. [Concomitant]
     Active Substance: RISPERIDONE
     Dosage: 1 MG, 1 IN 1 D
     Route: 048
  3. FERINJECT [Suspect]
     Active Substance: FERRIC CARBOXYMALTOSE
     Dosage: 500 MG/ 1 AMPOULE ONCE
     Route: 042
     Dates: start: 20190617, end: 20190617
  4. EXODUS [Concomitant]
     Dosage: 15 MG, 1 IN 1D
     Route: 048

REACTIONS (3)
  - Bradycardia [Unknown]
  - Paraesthesia [Unknown]
  - Abdominal pain upper [Unknown]

NARRATIVE: CASE EVENT DATE: 20190617
